FAERS Safety Report 10078569 (Version 1)
Quarter: 2014Q2

REPORT INFORMATION
  Report Type: Report from Study
  Country: GB (occurrence: GB)
  Receive Date: 20140415
  Receipt Date: 20140415
  Transmission Date: 20141212
  Serious: Yes (Hospitalization)
  Sender: FDA-Public Use
  Company Number: GB-NAPPMUNDI-GBR-2014-0017856

PATIENT
  Sex: Female

DRUGS (9)
  1. MORPHINE SULFATE [Suspect]
     Indication: PROCEDURAL PAIN
     Dosage: 30 MG, UNK
     Route: 048
  2. MORPHINE SULFATE [Suspect]
     Indication: NEURALGIA
  3. MORPHINE SULFATE [Suspect]
     Indication: ARTHRITIS
  4. MORPHINE SULFATE [Suspect]
     Indication: SURGERY
  5. MORPHINE SULFATE [Suspect]
     Indication: SCIATICA
  6. MORPHINE SULFATE [Suspect]
     Indication: OSTEOARTHRITIS
  7. MORPHINE SULFATE [Suspect]
     Indication: RHEUMATOID ARTHRITIS
  8. ORAMORPH [Concomitant]
  9. DICLOFENAC [Concomitant]

REACTIONS (4)
  - Memory impairment [Recovering/Resolving]
  - Feeling abnormal [Recovering/Resolving]
  - Constipation [Recovering/Resolving]
  - Muscle spasms [Recovering/Resolving]
